FAERS Safety Report 9516029 (Version 1)
Quarter: 2013Q3

REPORT INFORMATION
  Report Type: Spontaneous
  Country: US (occurrence: US)
  Receive Date: 20130911
  Receipt Date: 20130911
  Transmission Date: 20140515
  Serious: Yes (Other)
  Sender: FDA-Public Use
  Company Number: US-JNJFOC-20130902823

PATIENT
  Sex: Male
  Weight: 127.01 kg

DRUGS (1)
  1. INVEGA [Suspect]
     Indication: SCHIZOPHRENIA
     Route: 048
     Dates: start: 2010

REACTIONS (2)
  - Obsessive-compulsive disorder [Recovered/Resolved]
  - Amnesia [Recovered/Resolved]
